FAERS Safety Report 19998118 (Version 1)
Quarter: 2021Q4

REPORT INFORMATION
  Report Type: Report from Study
  Country: IT (occurrence: IT)
  Receive Date: 20211026
  Receipt Date: 20211026
  Transmission Date: 20220303
  Serious: Yes (Other)
  Sender: FDA-Public Use
  Company Number: None

PATIENT
  Age: 76 Year
  Sex: Female
  Weight: 80 kg

DRUGS (3)
  1. DOCETAXEL [Suspect]
     Active Substance: DOCETAXEL
     Indication: Breast cancer
     Dosage: 110 MILLIGRAM, CYCLE
     Route: 042
     Dates: start: 20210427, end: 20210427
  2. TRASTUZUMAB [Suspect]
     Active Substance: TRASTUZUMAB
     Indication: Breast cancer
     Dosage: 480 MILLIGRAM, CYCLE
     Route: 042
     Dates: start: 20210427, end: 20210427
  3. CARBOPLATIN [Suspect]
     Active Substance: CARBOPLATIN
     Indication: Breast cancer
     Dosage: 350 MILLIGRAM
     Route: 042
     Dates: start: 20210427, end: 20210427

REACTIONS (5)
  - Hypocalcaemia [Recovering/Resolving]
  - Blood creatinine increased [Recovering/Resolving]
  - Electrolyte imbalance [Recovering/Resolving]
  - Hypokalaemia [Recovering/Resolving]
  - Diarrhoea [Recovering/Resolving]

NARRATIVE: CASE EVENT DATE: 20210507
